FAERS Safety Report 4987677-7 (Version None)
Quarter: 2006Q2

REPORT INFORMATION
  Report Type: 
  Country: None (occurrence: None)
  Receive Date: 20060424
  Receipt Date: 20060405
  Transmission Date: 20061013
  Serious: Yes (Hospitalization, Other)
  Sender: FDA-Public Use
  Company Number: US200604000908

PATIENT
  Age: 66 Year
  Sex: Male

DRUGS (1)
  1. HUMALOG [Suspect]
     Indication: DIABETES MELLITUS

REACTIONS (3)
  - COMA [None]
  - MEMORY IMPAIRMENT [None]
  - VASCULAR BYPASS GRAFT [None]
